FAERS Safety Report 8296645-1 (Version None)
Quarter: 2012Q2

REPORT INFORMATION
  Report Type: 
  Country: None (occurrence: None)
  Receive Date: 20120418
  Receipt Date: 20120418
  Transmission Date: 20120825
  Serious: Yes (Other)
  Sender: FDA-Public Use
  Company Number: None

PATIENT
  Age: 67 Year
  Sex: Female
  Weight: 70.306 kg

DRUGS (1)
  1. LEXAPRO [Suspect]
     Indication: MAJOR DEPRESSION
     Dosage: 20.0 MG
     Route: 048
     Dates: start: 20030101, end: 20120418

REACTIONS (2)
  - DISTURBANCE IN ATTENTION [None]
  - MEMORY IMPAIRMENT [None]
